FAERS Safety Report 9829969 (Version 2)
Quarter: 2014Q1

REPORT INFORMATION
  Report Type: Report from Study
  Country: NL (occurrence: NL)
  Receive Date: 20140120
  Receipt Date: 20140208
  Transmission Date: 20141002
  Serious: Yes (Death)
  Sender: FDA-Public Use
  Company Number: NL-ROCHE-1335334

PATIENT
  Sex: Female

DRUGS (1)
  1. MIRCERA [Suspect]
     Indication: NEPHROGENIC ANAEMIA
     Route: 058
     Dates: start: 20131024

REACTIONS (1)
  - Death [Fatal]
